FAERS Safety Report 17542771 (Version 1)
Quarter: 2020Q1

REPORT INFORMATION
  Report Type: Spontaneous
  Country: US (occurrence: US)
  Receive Date: 20200306
  Receipt Date: 20200306
  Transmission Date: 20200409
  Serious: No
  Sender: FDA-Public Use
  Company Number: None

PATIENT
  Age: 44 Year
  Sex: Female

DRUGS (1)
  1. HARVONI [Suspect]
     Active Substance: LEDIPASVIR\SOFOSBUVIR
     Dosage: ?          OTHER DOSE:90/400;?
     Route: 048
     Dates: start: 202001

REACTIONS (4)
  - Dizziness [None]
  - Fatigue [None]
  - Headache [None]
  - Iron deficiency anaemia [None]

NARRATIVE: CASE EVENT DATE: 20200306
